FAERS Safety Report 10635733 (Version 3)
Quarter: 2015Q1

REPORT INFORMATION
  Report Type: Spontaneous
  Country: GB (occurrence: GB)
  Receive Date: 20141205
  Receipt Date: 20150206
  Transmission Date: 20150720
  Serious: Yes (Hospitalization)
  Sender: FDA-Public Use
  Company Number: GB-BAXTER-2014BAX070690

PATIENT
  Age: 59 Year
  Sex: Male
  Weight: 81.5 kg

DRUGS (2)
  1. PRISMASOL 4 [Suspect]
     Active Substance: ANHYDROUS DEXTROSE\LACTIC ACID\MAGNESIUM CHLORIDE\POTASSIUM CHLORIDE\SODIUM BICARBONATE\SODIUM CHLORIDE
     Indication: HAEMODIALYSIS
     Route: 010
  2. HEMOSOL BO [Suspect]
     Active Substance: BICARBONATE ION\CALCIUM CATION\LACTIC ACID\MAGNESIUM CATION\SODIUM CHLORIDE
     Indication: HAEMODIALYSIS
     Route: 010

REACTIONS (2)
  - Ornithine transcarbamoylase deficiency [Recovered/Resolved]
  - Ammonia increased [Unknown]
